FAERS Safety Report 17355141 (Version 1)
Quarter: 2020Q1

REPORT INFORMATION
  Report Type: Spontaneous
  Country: US (occurrence: US)
  Receive Date: 20200131
  Receipt Date: 20200131
  Transmission Date: 20200409
  Serious: No
  Sender: FDA-Public Use
  Company Number: US-009507513-2001USA009152

PATIENT
  Age: 42 Year
  Sex: Female

DRUGS (1)
  1. ETONOGESTREL (+) ETHINYL ESTRADIOL [Suspect]
     Active Substance: ETHINYL ESTRADIOL\ETONOGESTREL
     Indication: CONTRACEPTION
     Dosage: 1 RING
     Route: 067
     Dates: start: 20200118, end: 20200120

REACTIONS (6)
  - Fatigue [Recovered/Resolved]
  - Muscle spasms [Recovered/Resolved]
  - Migraine [Recovered/Resolved]
  - Vaginal haemorrhage [Unknown]
  - Incorrect product administration duration [Unknown]
  - Crying [Recovered/Resolved]

NARRATIVE: CASE EVENT DATE: 202001
